FAERS Safety Report 6032013-0 (Version None)
Quarter: 2009Q1

REPORT INFORMATION
  Report Type: 
  Country: None (occurrence: None)
  Receive Date: 20090108
  Receipt Date: 20081231
  Transmission Date: 20090719
  Serious: Yes (Hospitalization)
  Sender: FDA-Public Use
  Company Number: PHHY2008AU33574

PATIENT
  Sex: Male

DRUGS (1)
  1. CLOZARIL [Suspect]
     Dosage: UNK
     Dates: start: 19950704, end: 20081230

REACTIONS (2)
  - FALL [None]
  - LOSS OF CONSCIOUSNESS [None]
